FAERS Safety Report 4851752-8 (Version None)
Quarter: 2005Q4

REPORT INFORMATION
  Report Type: 
  Country: None (occurrence: None)
  Receive Date: 20051209
  Receipt Date: 20051125
  Transmission Date: 20060501
  Serious: Yes (Death)
  Sender: FDA-Public Use
  Company Number: S05-UKI-05536-01

PATIENT
  Age: 43 Year
  Sex: Male

DRUGS (3)
  1. ESCITALOPRAM OXALATE [Suspect]
     Indication: ANXIETY
     Dosage: 5 MG QD; PO
     Route: 048
     Dates: start: 20051025, end: 20051030
  2. ESCITALOPRAM OXALATE [Suspect]
     Indication: POST VIRAL FATIGUE SYNDROME
     Dosage: 5 MG QD; PO
     Route: 048
     Dates: start: 20051025, end: 20051030
  3. ZOLPIDEM TARTRATE [Concomitant]

REACTIONS (3)
  - COMPLETED SUICIDE [None]
  - IMPULSIVE BEHAVIOUR [None]
  - MENTAL DISORDER [None]
